FAERS Safety Report 22665335 (Version 2)
Quarter: 2023Q4

REPORT INFORMATION
  Report Type: Spontaneous
  Country: FR (occurrence: FR)
  Receive Date: 20230703
  Receipt Date: 20231106
  Transmission Date: 20240110
  Serious: Yes (Other)
  Sender: FDA-Public Use
  Company Number: FR-AFSSAPS-MP2023000474

PATIENT
  Age: 54 Year
  Sex: Female

DRUGS (5)
  1. ALLOPURINOL [Suspect]
     Active Substance: ALLOPURINOL
     Indication: Product used for unknown indication
     Dosage: 300 MILLIGRAM, DAILY
     Route: 048
     Dates: end: 20230122
  2. RAPAMUNE [Suspect]
     Active Substance: SIROLIMUS
     Indication: Immunosuppression
     Dosage: 1 MILLIGRAM, DAILY
     Route: 048
     Dates: start: 20230125, end: 20230131
  3. RAPAMUNE [Suspect]
     Active Substance: SIROLIMUS
     Dosage: 2 MILLIGRAM, DAILY
     Route: 048
     Dates: start: 20221202, end: 20230117
  4. RAPAMUNE [Suspect]
     Active Substance: SIROLIMUS
     Dosage: 1.5 MILLIGRAM, DAILY
     Route: 048
     Dates: start: 20230118, end: 20230124
  5. RAPAMUNE [Suspect]
     Active Substance: SIROLIMUS
     Dosage: 0.5 MILLIGRAM, DAILY
     Route: 048
     Dates: start: 20230201, end: 20230208

REACTIONS (2)
  - Thrombocytopenia [Recovering/Resolving]
  - Anaemia [Recovering/Resolving]

NARRATIVE: CASE EVENT DATE: 20221206
